FAERS Safety Report 19470100 (Version 1)
Quarter: 2021Q2

REPORT INFORMATION
  Report Type: Spontaneous
  Country: ES (occurrence: ES)
  Receive Date: 20210628
  Receipt Date: 20210628
  Transmission Date: 20210717
  Serious: Yes (Other)
  Sender: FDA-Public Use
  Company Number: ES-MYLANLABS-2021M1037387

PATIENT
  Age: 87 Year
  Sex: Male

DRUGS (3)
  1. PREDNISONE. [Suspect]
     Active Substance: PREDNISONE
     Indication: MYASTHENIA GRAVIS
     Dosage: 10 MILLIGRAM (48 HOURS)
  2. MELATONIN [Interacting]
     Active Substance: MELATONIN
     Indication: INSOMNIA
     Dosage: 1.9 MILLIGRAM, QD (EACH NIGHT)
  3. PREDNISONE. [Interacting]
     Active Substance: PREDNISONE
     Dosage: 15 MILLIGRAM (48 HOURS)

REACTIONS (2)
  - Drug interaction [Not Recovered/Not Resolved]
  - Myasthenia gravis [Not Recovered/Not Resolved]
